FAERS Safety Report 6784884-8 (Version None)
Quarter: 2010Q2

REPORT INFORMATION
  Report Type: 
  Country: None (occurrence: None)
  Receive Date: 20100618
  Receipt Date: 20100617
  Transmission Date: 20101027
  Serious: Yes (Other)
  Sender: FDA-Public Use
  Company Number: 1022556-2010-00036

PATIENT
  Age: 26 Year
  Sex: Male
  Weight: 136.0791 kg

DRUGS (4)
  1. ICY HOT NO MESS APPLICATOR 2.5 OZ [Suspect]
     Indication: BACK PAIN
     Dosage: TOPICAL/ONCE
     Route: 061
  2. CONSERTA [Concomitant]
  3. NEXXIUM [Concomitant]
  4. SOMA [Concomitant]

REACTIONS (3)
  - APPLICATION SITE BURN [None]
  - BURNS FIRST DEGREE [None]
  - CAUSTIC INJURY [None]
